FAERS Safety Report 14170302 (Version 1)
Quarter: 2017Q4

REPORT INFORMATION
  Report Type: Spontaneous
  Country: CA (occurrence: CA)
  Receive Date: 20171108
  Receipt Date: 20171108
  Transmission Date: 20180321
  Serious: Yes (Other)
  Sender: FDA-Public Use
  Company Number: CA-APOTEX-2017AP020772

PATIENT
  Sex: Male

DRUGS (5)
  1. CLODRONATE DISODIUM [Suspect]
     Active Substance: CLODRONATE DISODIUM
     Indication: BREAST CANCER
     Dosage: UNK
     Route: 065
     Dates: start: 201507, end: 201511
  2. APO-BICALUTAMIDE [Suspect]
     Active Substance: BICALUTAMIDE
     Indication: BREAST CANCER
     Dosage: UNK
     Route: 065
     Dates: start: 201512, end: 201606
  3. APO-ANASTROZOLE [Suspect]
     Active Substance: ANASTROZOLE
     Indication: BREAST CANCER
     Dosage: UNK
     Route: 065
     Dates: start: 201507, end: 201511
  4. APO-TAMOX [Suspect]
     Active Substance: TAMOXIFEN
     Indication: BREAST CANCER
     Dosage: UNK
     Route: 065
     Dates: start: 201007, end: 201507
  5. APO-CAPECITABINE [Suspect]
     Active Substance: CAPECITABINE
     Indication: BREAST CANCER
     Dosage: UNK
     Route: 065
     Dates: start: 201612, end: 201708

REACTIONS (2)
  - Disease progression [Unknown]
  - Metastatic neoplasm [Unknown]
